FAERS Safety Report 6734925-9 (Version None)
Quarter: 2010Q2

REPORT INFORMATION
  Report Type: 
  Country: None (occurrence: None)
  Receive Date: 20100521
  Receipt Date: 20100512
  Transmission Date: 20101027
  Serious: No
  Sender: FDA-Public Use
  Company Number: 2009BI041393

PATIENT
  Sex: Male

DRUGS (2)
  1. TYSABRI [Suspect]
     Indication: MULTIPLE SCLEROSIS
     Route: 042
     Dates: start: 20061214, end: 20081007
  2. TYSABRI [Suspect]
     Route: 042
     Dates: start: 20090507

REACTIONS (3)
  - BLADDER DISORDER [None]
  - DRUG INEFFECTIVE [None]
  - MULTIPLE SCLEROSIS [None]
